FAERS Safety Report 16985117 (Version 4)
Quarter: 2020Q3

REPORT INFORMATION
  Report Type: Report from Study
  Country: US (occurrence: US)
  Receive Date: 20191101
  Receipt Date: 20200602
  Transmission Date: 20201105
  Serious: Yes (Hospitalization)
  Sender: FDA-Public Use
  Company Number: US-REGENERON PHARMACEUTICALS, INC.-2019-61315

PATIENT

DRUGS (22)
  1. OXYBUTYNIN CHLORIDE. [Concomitant]
     Active Substance: OXYBUTYNIN CHLORIDE
     Indication: BENIGN PROSTATIC HYPERPLASIA
     Dosage: UNK
     Route: 065
  2. REGN?4659. [Suspect]
     Active Substance: REGN-4659
     Indication: NON-SMALL CELL LUNG CANCER
     Dosage: 75 MG, Q6W (C1D1)
     Route: 042
     Dates: start: 20190823, end: 20190823
  3. SULFASALAZINE. [Concomitant]
     Active Substance: SULFASALAZINE
     Indication: COLITIS ULCERATIVE
     Dosage: 2000 MG, BID
     Route: 048
     Dates: start: 1999
  4. REGN?4659. [Suspect]
     Active Substance: REGN-4659
     Dosage: 75 MG, Q6W (C2D1)
     Route: 042
     Dates: start: 20191003, end: 20191003
  5. NEXIUM [Concomitant]
     Active Substance: ESOMEPRAZOLE MAGNESIUM
     Indication: DYSPEPSIA
     Dosage: 40 MG, QD
     Route: 048
     Dates: start: 1999
  6. BENZONATATE. [Concomitant]
     Active Substance: BENZONATATE
     Indication: COUGH
     Dosage: 200 MG, AS NECESSARY
     Route: 048
     Dates: start: 20190812
  7. CODEINE SULFATE. [Concomitant]
     Active Substance: CODEINE SULFATE
     Indication: COUGH
     Dosage: 30 MG, AS NECESSARY
     Route: 048
     Dates: start: 20190801
  8. FISH OIL [Concomitant]
     Active Substance: FISH OIL
     Indication: SUPPLEMENTATION THERAPY
     Dosage: 2000 MG, QD
     Route: 048
     Dates: start: 2014
  9. FOLIC ACID. [Concomitant]
     Active Substance: FOLIC ACID
     Indication: SUPPLEMENTATION THERAPY
     Dosage: 800 ?G, QD
     Route: 048
     Dates: start: 2009
  10. LIPITOR [Concomitant]
     Active Substance: ATORVASTATIN CALCIUM
     Indication: HYPERLIPIDAEMIA
     Dosage: 40 MG, QD
     Route: 048
     Dates: start: 1990
  11. MULTIVITAMIN                       /00097801/ [Concomitant]
     Active Substance: VITAMINS
     Indication: VITAMIN SUPPLEMENTATION
     Dosage: 1 DF, QD
     Route: 048
     Dates: start: 1990
  12. CEMIPLIMAB [Suspect]
     Active Substance: CEMIPLIMAB
     Indication: NON-SMALL CELL LUNG CANCER
     Dosage: 350 MG, Q3W (C1D1)
     Route: 058
     Dates: start: 20190823, end: 20190823
  13. CEMIPLIMAB [Suspect]
     Active Substance: CEMIPLIMAB
     Dosage: 350 MG, Q3W (C1D22)
     Route: 058
     Dates: start: 20190913, end: 20190913
  14. FLOMAX [Concomitant]
     Active Substance: TAMSULOSIN HYDROCHLORIDE
     Indication: BENIGN PROSTATIC HYPERPLASIA
     Dosage: 0.4 MG, AS NECESSARY
     Route: 048
     Dates: start: 2014
  15. NITROSTAT [Concomitant]
     Active Substance: NITROGLYCERIN
     Indication: ANGINA PECTORIS
     Dosage: 0.4 MG, AS NECESSARY
     Route: 060
  16. RANOLAZINE. [Concomitant]
     Active Substance: RANOLAZINE
     Indication: ANGINA PECTORIS
     Dosage: 500 MG, BID
     Route: 048
     Dates: start: 2014
  17. ASPIRIN                            /00002701/ [Concomitant]
     Active Substance: ASPIRIN
     Indication: CARDIOVASCULAR EVENT PROPHYLAXIS
     Dosage: 162 MG, QD
     Route: 048
     Dates: start: 2000
  18. DESONIDE. [Concomitant]
     Active Substance: DESONIDE
     Indication: RASH
     Dosage: 1 APPLICATION, AS NECESSARY
     Route: 061
     Dates: start: 2004
  19. METOPROLOL TARTRATE. [Concomitant]
     Active Substance: METOPROLOL TARTRATE
     Indication: HYPERTENSION
     Dosage: 25 MG, QD
     Route: 048
     Dates: start: 2005
  20. ZOLOFT [Concomitant]
     Active Substance: SERTRALINE HYDROCHLORIDE
     Indication: DEPRESSION
     Dosage: 100 MG, QD
     Route: 048
     Dates: start: 2014
  21. CEMIPLIMAB [Suspect]
     Active Substance: CEMIPLIMAB
     Dosage: 350 MG, Q3W (C2D1)
     Route: 058
     Dates: start: 20191003, end: 20191003
  22. OXYBUTYNIN CHLORIDE. [Concomitant]
     Active Substance: OXYBUTYNIN CHLORIDE
     Indication: LOWER URINARY TRACT SYMPTOMS

REACTIONS (1)
  - Prostatitis [Recovered/Resolved]

NARRATIVE: CASE EVENT DATE: 20191016
